FAERS Safety Report 10768822 (Version 1)
Quarter: 2015Q1

REPORT INFORMATION
  Report Type: Spontaneous
  Country: US (occurrence: None)
  Receive Date: 20150204
  Receipt Date: 20150204
  Transmission Date: 20150721
  Serious: Yes (Other)
  Sender: FDA-Public Use
  Company Number: 1713747-2013-99985

PATIENT
  Age: 38 Year
  Sex: Male
  Weight: 62.9 kg

DRUGS (5)
  1. COLLECTIVE CONCENTRATES [Concomitant]
  2. 0.9% SODIUM CHLORIDE INJECTION USP [Suspect]
     Active Substance: SODIUM CHLORIDE
     Indication: CHRONIC KIDNEY DISEASE
     Dosage: HEMODIALYSIS
     Dates: start: 20130405
  3. OPTIFLUX DIALYZER [Concomitant]
     Active Substance: DEVICE
  4. HEMODIALYSIS DEVICE [Concomitant]
  5. COMBISET BLOODLINES [Concomitant]

REACTIONS (3)
  - Unresponsive to stimuli [None]
  - Seizure [None]
  - Hyperhidrosis [None]

NARRATIVE: CASE EVENT DATE: 20130405
